FAERS Safety Report 11325225 (Version 1)
Quarter: 2015Q3

REPORT INFORMATION
  Report Type: Spontaneous
  Country: US (occurrence: US)
  Receive Date: 20150730
  Receipt Date: 20150730
  Transmission Date: 20151125
  Serious: Yes (Other)
  Sender: FDA-Public Use
  Company Number: US-CELGENEUS-USA-2015074141

PATIENT
  Sex: Female

DRUGS (4)
  1. ROBAXIN [Concomitant]
     Active Substance: METHOCARBAMOL
     Indication: INTERVERTEBRAL DISC PROTRUSION
     Route: 065
     Dates: start: 2013
  2. OXYCODONE WITH ACETAMINOPHEN [Concomitant]
     Indication: INTERVERTEBRAL DISC PROTRUSION
     Route: 065
     Dates: start: 2013
  3. OTEZLA [Suspect]
     Active Substance: APREMILAST
     Indication: PSORIASIS
     Dosage: 60 MILLIGRAM
     Route: 048
     Dates: start: 20150711
  4. IBUPROFEN. [Concomitant]
     Active Substance: IBUPROFEN
     Indication: INTERVERTEBRAL DISC PROTRUSION
     Route: 065
     Dates: start: 2013

REACTIONS (3)
  - Vomiting [Unknown]
  - Head discomfort [Unknown]
  - Nausea [Unknown]

NARRATIVE: CASE EVENT DATE: 20150713
